FAERS Safety Report 6724594 (Version 19)
Quarter: 2015Q1

REPORT INFORMATION
  Report Type: Spontaneous
  Country: US (occurrence: US)
  Receive Date: 20080812
  Receipt Date: 20150207
  Transmission Date: 20150721
  Serious: Yes (Hospitalization, Other)
  Sender: FDA-Public Use
  Company Number: US-ROCHE-552258

PATIENT
  Age: 14 Year
  Sex: Male
  Weight: 77.1 kg

DRUGS (2)
  1. RITALIN [Concomitant]
     Active Substance: METHYLPHENIDATE HYDROCHLORIDE
     Indication: ATTENTION DEFICIT/HYPERACTIVITY DISORDER
     Dosage: DOSE HAS VARIED OVER THE YEARS.
     Route: 065
  2. ACCUTANE [Suspect]
     Active Substance: ISOTRETINOIN
     Indication: ACNE CYSTIC
     Route: 048
     Dates: start: 19910726, end: 19920114

REACTIONS (17)
  - Crohn^s disease [Unknown]
  - Lip dry [Unknown]
  - Cholangitis sclerosing [Unknown]
  - Anal fissure [Unknown]
  - Bipolar disorder [Unknown]
  - Xerosis [Unknown]
  - Thrombocytopenia [Recovered/Resolved]
  - Anxiety [Not Recovered/Not Resolved]
  - Insomnia [Not Recovered/Not Resolved]
  - Incisional hernia [Unknown]
  - Irritable bowel syndrome [Unknown]
  - Cheilitis [Unknown]
  - Pouchitis [Unknown]
  - Colitis [Unknown]
  - Inflammatory bowel disease [Unknown]
  - Liver disorder [Unknown]
  - Depression [Recovered/Resolved]

NARRATIVE: CASE EVENT DATE: 19910813
